FAERS Safety Report 17781389 (Version 1)
Quarter: 2020Q2

REPORT INFORMATION
  Report Type: Spontaneous
  Country: US (occurrence: US)
  Receive Date: 20200514
  Receipt Date: 20200514
  Transmission Date: 20200714
  Serious: Yes (Hospitalization, Other)
  Sender: FDA-Public Use
  Company Number: US-AMGEN-USASP2020074629

PATIENT
  Age: 88 Year
  Sex: Female

DRUGS (1)
  1. PROLIA [Suspect]
     Active Substance: DENOSUMAB
     Indication: OSTEOPOROSIS POSTMENOPAUSAL
     Dosage: 60 MILLIGRAM, Q6MO
     Route: 065

REACTIONS (9)
  - COVID-19 [Recovered/Resolved]
  - Post procedural infection [Unknown]
  - Corneal deposits [Unknown]
  - Hypercholesterolaemia [Unknown]
  - Sinusitis [Not Recovered/Not Resolved]
  - Fall [Unknown]
  - Hypertension [Unknown]
  - Blindness [Unknown]
  - Foot fracture [Recovered/Resolved]

NARRATIVE: CASE EVENT DATE: 2018
